FAERS Safety Report 11394112 (Version 1)
Quarter: 2015Q3

REPORT INFORMATION
  Report Type: Spontaneous
  Country: None (occurrence: None)
  Receive Date: 20150817
  Receipt Date: 20150817
  Transmission Date: 20151125
  Serious: Yes (Disabling)
  Sender: FDA-Public Use
  Company Number: None

PATIENT
  Age: 29 Year
  Sex: Female
  Weight: 64.41 kg

DRUGS (3)
  1. HERCEPTIN CHEMOTHERAPY MAINTENANCE [Concomitant]
  2. MULTIVITAMINS [Concomitant]
     Active Substance: VITAMINS
  3. GABAPENTIN. [Suspect]
     Active Substance: GABAPENTIN
     Indication: NEUROPATHY PERIPHERAL
     Dosage: 2 PILLS TWICE DAILY
     Route: 048
     Dates: start: 20150720, end: 20150816

REACTIONS (15)
  - Disturbance in attention [None]
  - Vertigo [None]
  - Asthenia [None]
  - Coordination abnormal [None]
  - Speech disorder [None]
  - Gait disturbance [None]
  - Fatigue [None]
  - Somnolence [None]
  - Memory impairment [None]
  - Restlessness [None]
  - Nausea [None]
  - Balance disorder [None]
  - Dizziness [None]
  - Neuropathy peripheral [None]
  - Condition aggravated [None]

NARRATIVE: CASE EVENT DATE: 20150814
